FAERS Safety Report 8446468-5 (Version None)
Quarter: 2012Q2

REPORT INFORMATION
  Report Type: 
  Country: None (occurrence: None)
  Receive Date: 20120618
  Receipt Date: 20120404
  Transmission Date: 20120825
  Serious: No
  Sender: FDA-Public Use
  Company Number: US-TEVA-331722USA

PATIENT
  Sex: Male
  Weight: 108.96 kg

DRUGS (4)
  1. MS CONTIN [Concomitant]
  2. ACTIQ [Suspect]
     Indication: BREAKTHROUGH PAIN
     Route: 002
     Dates: start: 20120301
  3. OPANA ER [Concomitant]
  4. MORPHINE SULFATE [Concomitant]

REACTIONS (1)
  - PAIN [None]
